FAERS Safety Report 4476859-9 (Version None)
Quarter: 2004Q4

REPORT INFORMATION
  Report Type: 
  Country: None (occurrence: None)
  Receive Date: 20041013
  Receipt Date: 20040930
  Transmission Date: 20050328
  Serious: Yes (Hospitalization)
  Sender: FDA-Public Use
  Company Number: 204215

PATIENT
  Age: 46 Year
  Sex: Female

DRUGS (4)
  1. AVONEX [Suspect]
     Indication: MULTIPLE SCLEROSIS
     Dosage: 30 MCG QW IM
     Route: 030
     Dates: end: 20040101
  2. AVONEX [Suspect]
     Indication: MULTIPLE SCLEROSIS
     Dosage: 30 MCG QW IM
     Route: 030
     Dates: start: 20040101
  3. NEURONTIN [Concomitant]
  4. VICODIN [Concomitant]

REACTIONS (5)
  - ARTHRALGIA [None]
  - IMPAIRED DRIVING ABILITY [None]
  - JOINT INJURY [None]
  - LOWER LIMB DEFORMITY [None]
  - WALKING AID USER [None]
